FAERS Safety Report 9717780 (Version 1)
Quarter: 2013Q4

REPORT INFORMATION
  Report Type: Spontaneous
  Country: US (occurrence: None)
  Receive Date: 20131125
  Receipt Date: 20131125
  Transmission Date: 20140711
  Serious: Yes (Death)
  Sender: FDA-Public Use
  Company Number: 2013P1021086

PATIENT
  Age: 69 Year
  Sex: Female

DRUGS (1)
  1. COLLAGENASE SANTYL [Suspect]
     Indication: SKIN ULCER
     Dates: start: 201303

REACTIONS (4)
  - Gangrene [None]
  - Drug administered at inappropriate site [None]
  - Skin disorder [None]
  - Peripheral circulatory failure [None]
